FAERS Safety Report 5689054-2 (Version None)
Quarter: 2008Q1

REPORT INFORMATION
  Report Type: 
  Country: None (occurrence: None)
  Receive Date: 20080331
  Receipt Date: 20080320
  Transmission Date: 20080703
  Serious: Yes (Other)
  Sender: FDA-Public Use
  Company Number: B0513436A

PATIENT
  Age: 70 Year
  Sex: Male

DRUGS (3)
  1. AVANDIA [Suspect]
     Indication: TYPE 2 DIABETES MELLITUS
     Dosage: 4MG PER DAY
     Route: 048
     Dates: start: 20060201
  2. STAGID [Concomitant]
     Indication: TYPE 2 DIABETES MELLITUS
     Route: 065
  3. COTAREG [Concomitant]
     Indication: HYPERTENSION
     Route: 065

REACTIONS (9)
  - ANAEMIA [None]
  - ASTHENIA [None]
  - CHEST PAIN [None]
  - DYSPNOEA EXERTIONAL [None]
  - GASTROINTESTINAL HAEMORRHAGE [None]
  - MALAISE [None]
  - RENAL FAILURE ACUTE [None]
  - SENSE OF OPPRESSION [None]
  - WEIGHT INCREASED [None]
